FAERS Safety Report 6878690-3 (Version None)
Quarter: 2010Q3

REPORT INFORMATION
  Report Type: 
  Country: None (occurrence: None)
  Receive Date: 20100728
  Receipt Date: 20100722
  Transmission Date: 20110219
  Serious: Yes (Life-Threatening)
  Sender: FDA-Public Use
  Company Number: B0666627A

PATIENT
  Sex: Female

DRUGS (3)
  1. CLAMOXYL IV [Suspect]
     Indication: PYELONEPHRITIS
     Dosage: 1G THREE TIMES PER DAY
     Route: 042
     Dates: start: 20100621, end: 20100622
  2. AUGMENTIN '125' [Suspect]
     Indication: PYELONEPHRITIS
     Dosage: 1G THREE TIMES PER DAY
     Route: 048
     Dates: start: 20100622, end: 20100623
  3. TOPALGIC ( FRANCE ) [Suspect]
     Indication: PAIN
     Dosage: 50MG FOUR TIMES PER DAY
     Route: 042
     Dates: start: 20100621, end: 20100622

REACTIONS (6)
  - C-REACTIVE PROTEIN INCREASED [None]
  - DEHYDRATION [None]
  - ERYTHEMA [None]
  - MALNUTRITION [None]
  - SKIN EXFOLIATION [None]
  - TOXIC EPIDERMAL NECROLYSIS [None]
